FAERS Safety Report 25363151 (Version 1)
Quarter: 2025Q2

REPORT INFORMATION
  Report Type: Spontaneous
  Country: CN (occurrence: CN)
  Receive Date: 20250527
  Receipt Date: 20250527
  Transmission Date: 20250717
  Serious: Yes (Hospitalization)
  Sender: COHERUS
  Company Number: CN-SHANGHAI JUNSHI BIOSCIENCES CO., LTD.-CN2025014182

PATIENT

DRUGS (6)
  1. TORIPALIMAB [Suspect]
     Active Substance: TORIPALIMAB
     Indication: Malignant neoplasm of renal pelvis
     Dosage: 240 MG (D1),Q21D
     Route: 041
     Dates: start: 20250425, end: 20250425
  2. PACLITAXEL [Suspect]
     Active Substance: PACLITAXEL
     Indication: Malignant neoplasm of renal pelvis
     Dosage: 150 MG (D1), Q21D
     Route: 041
     Dates: start: 20250425, end: 20250425
  3. RALTITREXED [Suspect]
     Active Substance: RALTITREXED
     Indication: Malignant neoplasm of renal pelvis
     Dosage: 2.5 MG (D1), Q21D
     Route: 041
     Dates: start: 20250425, end: 20250425
  4. SODIUM CHLORIDE [Concomitant]
     Active Substance: SODIUM CHLORIDE
     Indication: Medication dilution
     Dosage: 100 ML (D1), Q21D
     Route: 041
     Dates: start: 20250425, end: 20250425
  5. SODIUM CHLORIDE [Concomitant]
     Active Substance: SODIUM CHLORIDE
     Dosage: 100 ML (D1), Q21D
     Route: 041
     Dates: start: 20250425, end: 20250425
  6. SODIUM CHLORIDE [Concomitant]
     Active Substance: SODIUM CHLORIDE
     Indication: Medication dilution
     Dosage: 40 ML (D1), Q21D
     Route: 041
     Dates: start: 20250425, end: 20250425

REACTIONS (3)
  - Respiratory failure [Recovering/Resolving]
  - Immune-mediated lung disease [Recovering/Resolving]
  - Pneumonia [Recovering/Resolving]

NARRATIVE: CASE EVENT DATE: 20250508
